FAERS Safety Report 25677000 (Version 1)
Quarter: 2025Q3

REPORT INFORMATION
  Report Type: Spontaneous
  Country: US (occurrence: US)
  Receive Date: 20250813
  Receipt Date: 20250813
  Transmission Date: 20251020
  Serious: No
  Sender: SANOFI AVENTIS
  Company Number: US-SA-2025SA235191

PATIENT
  Sex: Female
  Weight: 126.36 kg

DRUGS (13)
  1. KEVZARA [Suspect]
     Active Substance: SARILUMAB
     Indication: Rheumatoid arthritis
     Dosage: 200 MG, QOW
     Route: 058
  2. MAGNESIUM [Concomitant]
     Active Substance: MAGNESIUM
  3. SOTALOL HYDROCHLORIDE [Concomitant]
     Active Substance: SOTALOL HYDROCHLORIDE
  4. POTASSIUM [Concomitant]
     Active Substance: POTASSIUM
  5. PRAVASTATIN SODIUM [Concomitant]
     Active Substance: PRAVASTATIN SODIUM
  6. METHOTREXATE [Concomitant]
     Active Substance: METHOTREXATE
  7. ISOSORBIDE MONONITRATE [Concomitant]
     Active Substance: ISOSORBIDE MONONITRATE
  8. CITALOPRAM HYDROBROMIDE [Concomitant]
     Active Substance: CITALOPRAM HYDROBROMIDE
  9. DICLOFENAC [Concomitant]
     Active Substance: DICLOFENAC
  10. PREDNISONE [Concomitant]
     Active Substance: PREDNISONE
  11. JANUVIA [Concomitant]
     Active Substance: SITAGLIPTIN PHOSPHATE
  12. GLIMEPIRIDE [Concomitant]
     Active Substance: GLIMEPIRIDE
  13. ELIQUIS [Concomitant]
     Active Substance: APIXABAN

REACTIONS (1)
  - Drug ineffective [Unknown]
